FAERS Safety Report 17831357 (Version 1)
Quarter: 2020Q2

REPORT INFORMATION
  Report Type: Report from Study
  Country: US (occurrence: US)
  Receive Date: 20200527
  Receipt Date: 20200527
  Transmission Date: 20200714
  Serious: Yes (Hospitalization, Other)
  Sender: FDA-Public Use
  Company Number: US-BIOVITRUM-2019US0331

PATIENT
  Age: 10 Year
  Sex: Female
  Weight: 24 kg

DRUGS (2)
  1. PROAIR (ALBUTEROL) [Concomitant]
     Active Substance: ALBUTEROL
     Dosage: 2 INHALATIONS PRN
     Route: 048
     Dates: start: 20131001
  2. KINERET [Suspect]
     Active Substance: ANAKINRA
     Indication: CHRONIC INFANTILE NEUROLOGICAL CUTANEOUS AND ARTICULAR SYNDROME
     Dosage: DOSE, UNITS REPORTED AS: (140 MG) 0.94 ML
     Route: 058
     Dates: start: 2008

REACTIONS (3)
  - Abdominal wall abscess [Recovered/Resolved]
  - Staphylococcal bacteraemia [Recovered/Resolved]
  - Infection [Recovered/Resolved]

NARRATIVE: CASE EVENT DATE: 20180706
